FAERS Safety Report 5826245-1 (Version None)
Quarter: 2008Q3

REPORT INFORMATION
  Report Type: 
  Country: None (occurrence: None)
  Receive Date: 20080729
  Receipt Date: 20080716
  Transmission Date: 20090109
  Serious: Yes (Other)
  Sender: FDA-Public Use
  Company Number: GB-BAUSCH-2008BL003125

PATIENT
  Age: 63 Year
  Sex: Male

DRUGS (4)
  1. PREDNISOLONE [Suspect]
     Indication: CHONDROCALCINOSIS PYROPHOSPHATE
  2. PREDNISOLONE [Suspect]
  3. INDOMETHACIN [Suspect]
     Indication: CHONDROCALCINOSIS PYROPHOSPHATE
  4. ALLOPURINOL [Concomitant]
     Indication: CHONDROCALCINOSIS PYROPHOSPHATE

REACTIONS (3)
  - CUSHINGOID [None]
  - DRUG INEFFECTIVE [None]
  - WEIGHT INCREASED [None]
